FAERS Safety Report 24737514 (Version 1)
Quarter: 2024Q4

REPORT INFORMATION
  Report Type: Spontaneous
  Country: US (occurrence: None)
  Receive Date: 20241214
  Receipt Date: 20241214
  Transmission Date: 20250115
  Serious: Yes (Other)
  Sender: Public
  Company Number: None

PATIENT
  Age: 74 Year
  Sex: Male

DRUGS (7)
  1. FORTEO [Suspect]
     Active Substance: TERIPARATIDE
  2. CALCIUM  600 [Concomitant]
     Dosage: FREQUENCY : DAILY;?
     Dates: start: 20241211
  3. CYCLOBENZAPRTAB10Mo [Concomitant]
  4. ELIQUIS [Concomitant]
     Active Substance: APIXABAN
  5. OXYCODONE [Concomitant]
     Active Substance: OXYCODONE
  6. TAMSULOSIN [Concomitant]
     Active Substance: TAMSULOSIN
  7. VITAM1N D3 [Concomitant]

REACTIONS (2)
  - Bone cancer [None]
  - Therapy interrupted [None]

NARRATIVE: CASE EVENT DATE: 20241213
